FAERS Safety Report 21123009 (Version 1)
Quarter: 2022Q3

REPORT INFORMATION
  Report Type: Spontaneous
  Country: US (occurrence: None)
  Receive Date: 20220724
  Receipt Date: 20220724
  Transmission Date: 20221027
  Serious: No
  Sender: FDA-Public Use
  Company Number: 2022A237856

PATIENT
  Sex: Male

DRUGS (24)
  1. TEZSPIRE [Suspect]
     Active Substance: TEZEPELUMAB-EKKO
     Route: 065
  2. DUPIXENT [Suspect]
     Active Substance: DUPILUMAB
     Indication: Asthma
     Dosage: 300MG/ML EVERY TWO WEEKS
     Route: 065
     Dates: start: 20190517
  3. BOTOX [Concomitant]
     Active Substance: ONABOTULINUMTOXINA
     Route: 065
  4. BELBUCA [Concomitant]
     Active Substance: BUPRENORPHINE HYDROCHLORIDE
     Route: 065
  5. NURTEC ODT [Concomitant]
     Active Substance: RIMEGEPANT SULFATE
     Route: 065
  6. UBRELVY [Concomitant]
     Active Substance: UBROGEPANT
     Route: 065
  7. CAMBIA [Concomitant]
     Active Substance: DICLOFENAC POTASSIUM
     Route: 065
  8. ALMOTRIPTAN MALATE [Concomitant]
     Active Substance: ALMOTRIPTAN MALATE
     Route: 065
  9. MAGNESIUM [Concomitant]
     Active Substance: MAGNESIUM
     Route: 065
  10. BENADRYL [Concomitant]
     Active Substance: DIPHENHYDRAMINE HYDROCHLORIDE
     Route: 065
  11. BREO ELLIPTA [Concomitant]
     Active Substance: FLUTICASONE FUROATE\VILANTEROL TRIFENATATE
     Route: 065
  12. COZAAR [Concomitant]
     Active Substance: LOSARTAN POTASSIUM
     Route: 065
  13. GABAPENTIN [Concomitant]
     Active Substance: GABAPENTIN
     Route: 065
  14. IBUPROFEN [Concomitant]
     Active Substance: IBUPROFEN
     Route: 065
  15. LIPITOR [Concomitant]
     Active Substance: ATORVASTATIN CALCIUM
     Route: 065
  16. METOPROLOL SUCCINATE [Concomitant]
     Active Substance: METOPROLOL SUCCINATE
     Route: 065
  17. PREDNISONE [Concomitant]
     Active Substance: PREDNISONE
     Route: 065
  18. QVAR [Concomitant]
     Active Substance: BECLOMETHASONE DIPROPIONATE
     Route: 065
  19. RAPAFLO [Concomitant]
     Active Substance: SILODOSIN
     Route: 065
  20. SPIRIVA RESPIMAT [Concomitant]
     Active Substance: TIOTROPIUM BROMIDE
     Route: 065
  21. VERAPAMIL [Concomitant]
     Active Substance: VERAPAMIL HYDROCHLORIDE
     Route: 065
  22. VITAMIN D [Concomitant]
     Active Substance: VITAMIN D NOS
     Dosage: 400
     Route: 065
  23. XANAX [Concomitant]
     Active Substance: ALPRAZOLAM
     Route: 065
  24. UBRELVY [Concomitant]
     Active Substance: UBROGEPANT
     Route: 065

REACTIONS (3)
  - Migraine [Not Recovered/Not Resolved]
  - Spinal osteoarthritis [Not Recovered/Not Resolved]
  - Drug hypersensitivity [Unknown]
